FAERS Safety Report 6169830-2 (Version None)
Quarter: 2009Q2

REPORT INFORMATION
  Report Type: 
  Country: None (occurrence: None)
  Receive Date: 20090428
  Receipt Date: 20090427
  Transmission Date: 20091009
  Serious: Yes (Other)
  Sender: FDA-Public Use
  Company Number: US-BAYER-200836547NA

PATIENT
  Age: 37 Year
  Sex: Female
  Weight: 58 kg

DRUGS (9)
  1. NIFEDIPINE [Suspect]
     Indication: DRUG USE FOR UNKNOWN INDICATION
     Dosage: 60 MG, 2 IN 1 DAYS
     Route: 048
  2. ARANESP [Suspect]
     Indication: DIALYSIS
     Route: 058
     Dates: start: 20040901
  3. ESOMEPRAZOLE MAGNESIUM [Suspect]
     Indication: DRUG USE FOR UNKNOWN INDICATION
     Dosage: 20 MG, 2 IN 1 DAYS
     Route: 048
  4. ENALAPRIL [Suspect]
     Indication: DRUG USE FOR UNKNOWN INDICATION
     Dosage: 10 MG, 1 IN 1 DAY
     Route: 048
  5. FOLIC ACID [Concomitant]
     Dosage: 1 MG, 1 IN 1 DAY
     Route: 048
  6. CLONIDINE [Concomitant]
     Dosage: 0.2 MG, 2 IN 1 DAY
     Route: 048
  7. PARICALCITOL [Concomitant]
     Dosage: 5 MCG, 3 IN 1 WEEK
     Route: 048
  8. PHOSLO [Concomitant]
  9. NADOLOL [Concomitant]
     Dosage: 80 MG, 1 IN 1 DAY
     Route: 048

REACTIONS (2)
  - APLASTIC ANAEMIA [None]
  - BLOOD PRESSURE INCREASED [None]
